FAERS Safety Report 26093874 (Version 1)
Quarter: 2025Q4

REPORT INFORMATION
  Report Type: Spontaneous
  Country: US (occurrence: US)
  Receive Date: 20251126
  Receipt Date: 20251126
  Transmission Date: 20260117
  Serious: Yes (Death)
  Sender: AMGEN
  Company Number: US-AMGEN-USASP2025230768

PATIENT
  Age: 52 Year
  Sex: Female

DRUGS (4)
  1. RITUXIMAB [Suspect]
     Active Substance: RITUXIMAB
     Indication: ADAMTS13 activity decreased
     Dosage: 375 MILLIGRAM/SQ. METER, 1 DOSE
     Route: 065
  2. PREDNISONE [Suspect]
     Active Substance: PREDNISONE
     Indication: ADAMTS13 activity decreased
     Dosage: TAPER
     Route: 065
  3. ASPIRIN [Concomitant]
     Active Substance: ASPIRIN
  4. SOLU-MEDROL [Concomitant]
     Active Substance: METHYLPREDNISOLONE SODIUM SUCCINATE
     Route: 040

REACTIONS (2)
  - Cardiac arrest [Fatal]
  - Off label use [Unknown]
